FAERS Safety Report 4567190-1 (Version None)
Quarter: 2005Q1

REPORT INFORMATION
  Report Type: 
  Country: None (occurrence: None)
  Receive Date: 20050201
  Receipt Date: 20040308
  Transmission Date: 20050727
  Serious: Yes (Other)
  Sender: FDA-Public Use
  Company Number: GB-GLAXOSMITHKLINE-B0325990A

PATIENT
  Age: 30 Year
  Sex: Female

DRUGS (2)
  1. COMBIVIR [Suspect]
     Indication: ASYMPTOMATIC HIV INFECTION
     Route: 048
     Dates: start: 20031124
  2. VIRAMUNE [Suspect]
     Indication: ASYMPTOMATIC HIV INFECTION
     Dosage: 400MG PER DAY
     Route: 048
     Dates: start: 20031124

REACTIONS (2)
  - HEPATOTOXICITY [None]
  - STILLBIRTH [None]
